FAERS Safety Report 7733549-4 (Version None)
Quarter: 2011Q3

REPORT INFORMATION
  Report Type: 
  Country: None (occurrence: None)
  Receive Date: 20110907
  Receipt Date: 20110906
  Transmission Date: 20111222
  Serious: Yes (Hospitalization)
  Sender: FDA-Public Use
  Company Number: JP-EISAI INC-E2020-09632-CLI-JP

PATIENT
  Sex: Female
  Weight: 44 kg

DRUGS (16)
  1. BI_SIFROL (PRAMIPEXOLE HYDROCHLORIDE HYDRATE) [Concomitant]
     Indication: PARKINSON'S DISEASE
     Route: 048
     Dates: end: 20110707
  2. THYRADIN S (LEVOTHYROXINE SODIUM HYDRATE) [Concomitant]
     Indication: HYPOTHYROIDISM
     Route: 048
     Dates: start: 20100819
  3. DONEPEZIL HCL [Suspect]
     Dosage: DOUBLE BLIND
     Route: 048
     Dates: start: 20110610, end: 20110823
  4. LENDORMIN D (BROTIZOLAM) [Concomitant]
     Indication: INSOMNIA
     Route: 048
     Dates: start: 20090407
  5. NEW LECICARBON SUPP (SODIUM BICARBONATE) [Concomitant]
     Indication: CONSTIPATION
     Route: 054
     Dates: start: 20100714
  6. MENESIT (LEVODOPA_CARBIDOPA HYDRATE) [Concomitant]
     Dates: start: 20110610
  7. PRAVASTATIN [Concomitant]
     Route: 048
     Dates: start: 20090714
  8. DONEPEZIL HCL [Suspect]
     Indication: PARKINSON'S DISEASE
     Dosage: DOUBLE BLIND
     Route: 048
     Dates: start: 20110603, end: 20110609
  9. BI_SIFROL (PRAMIPEXOLE HYDROCHLORIDE HYDRATE) [Concomitant]
     Route: 048
     Dates: start: 20110708
  10. MAGMITT (MAGNESIUM OXIDE) [Concomitant]
     Indication: CONSTIPATION
     Route: 048
     Dates: start: 20090407
  11. FP-OD (SELEGILINE HYDROCHLORIDE) [Concomitant]
     Route: 048
     Dates: start: 20100916, end: 20110707
  12. FP-OD (SELEGILINE HYDROCHLORIDE) [Concomitant]
     Route: 048
     Dates: start: 20110708
  13. DOPS (SELEGILINE HYDROCHLORIDE) [Concomitant]
     Indication: PARKINSON'S DISEASE
     Route: 048
     Dates: start: 20100714
  14. SOFTSANTEAR (POTASSIUM CHLORIDE/SODIUM CHLORIDE) [Concomitant]
     Indication: DRY EYE
     Route: 031
  15. MENESIT (LEVODOPA_CARBIDOPA HYDRATE) [Concomitant]
     Indication: PARKINSON'S DISEASE
     Route: 048
     Dates: end: 20110609
  16. LORAZEPAM [Concomitant]
     Indication: PARKINSON'S DISEASE
     Route: 048
     Dates: start: 20110217

REACTIONS (1)
  - BREAST CANCER [None]
